FAERS Safety Report 15856729 (Version 3)
Quarter: 2019Q1

REPORT INFORMATION
  Report Type: Spontaneous
  Country: NL (occurrence: NL)
  Receive Date: 20190123
  Receipt Date: 20190326
  Transmission Date: 20190417
  Serious: Yes (Death, Life-Threatening, Hospitalization, Other)
  Sender: FDA-Public Use
  Company Number: NL-AUROBINDO-AUR-APL-2019-002636

PATIENT

DRUGS (8)
  1. LAMOTRIGINE. [Suspect]
     Active Substance: LAMOTRIGINE
     Indication: BIPOLAR DISORDER
     Dosage: 25 MILLIGRAM, TWO TIMES A DAY (12 HOUR)
     Route: 065
  2. ZOPICLONE [Concomitant]
     Active Substance: ZOPICLONE
     Indication: BIPOLAR DISORDER
     Dosage: 15 MILLIGRAM, DAILY
     Route: 065
  3. SODIUM VALPROATE [Concomitant]
     Active Substance: VALPROATE SODIUM
     Indication: BIPOLAR DISORDER
     Dosage: 600 MILLIGRAM, TWO TIMES A DAY
     Route: 065
  4. OLANZAPINE. [Concomitant]
     Active Substance: OLANZAPINE
     Indication: BIPOLAR DISORDER
     Dosage: 10 MILLIGRAM, ONCE A DAY
     Route: 065
  5. LURASIDONE [Concomitant]
     Active Substance: LURASIDONE
     Indication: BIPOLAR DISORDER
     Dosage: 37 MILLIGRAM, ONCE A DAY
     Route: 065
  6. LAMOTRIGINE. [Suspect]
     Active Substance: LAMOTRIGINE
     Dosage: 50 MILLIGRAM, TWO TIMES A DAY (12 HOUR)
     Route: 065
  7. XEPLION [Suspect]
     Active Substance: PALIPERIDONE PALMITATE
     Indication: BIPOLAR DISORDER
     Dosage: 100 MILLIGRAM, 4 WEEK,PROLONGED-RELEASE
     Route: 030
  8. RISPERDAL CONSTA [Concomitant]
     Active Substance: RISPERIDONE
     Indication: BIPOLAR DISORDER
     Dosage: 50 MILLIGRAM, 2 WEEK
     Route: 065

REACTIONS (7)
  - Hyponatraemia [Fatal]
  - Coma [Fatal]
  - Product use in unapproved indication [Unknown]
  - Seizure [Unknown]
  - Inappropriate antidiuretic hormone secretion [Fatal]
  - Brain death [Fatal]
  - Off label use [Unknown]
